FAERS Safety Report 10700777 (Version 1)
Quarter: 2015Q1

REPORT INFORMATION
  Report Type: Spontaneous
  Country: US (occurrence: None)
  Receive Date: 20150108
  Receipt Date: 20150108
  Transmission Date: 20150721
  Serious: Yes (Disabling, Other)
  Sender: FDA-Public Use
  Company Number: None

PATIENT
  Age: 51 Year
  Sex: Female
  Weight: 86.18 kg

DRUGS (11)
  1. BACK BRACE [Concomitant]
  2. VITAMIN C [Concomitant]
     Active Substance: ASCORBIC ACID
  3. HYDROCODINE/ACETAMINAPHIN [Concomitant]
  4. LYRICA [Concomitant]
     Active Substance: PREGABALIN
  5. AMYLODPINE [Concomitant]
  6. MULTIVITAMIN [Concomitant]
     Active Substance: VITAMINS
  7. FOLIC ACID. [Concomitant]
     Active Substance: FOLIC ACID
  8. CANE [Concomitant]
  9. ATENOLOL. [Concomitant]
     Active Substance: ATENOLOL
  10. KENALOG [Suspect]
     Active Substance: TRIAMCINOLONE ACETONIDE
  11. LORITADINE [Concomitant]

REACTIONS (1)
  - Arachnoiditis [None]

NARRATIVE: CASE EVENT DATE: 20121018
